FAERS Safety Report 16052696 (Version 1)
Quarter: 2019Q1

REPORT INFORMATION
  Report Type: Spontaneous
  Country: GB (occurrence: GB)
  Receive Date: 20190308
  Receipt Date: 20190308
  Transmission Date: 20190418
  Serious: Yes (Hospitalization)
  Sender: FDA-Public Use
  Company Number: GB-PFIZER INC-2019097857

PATIENT
  Sex: Male

DRUGS (9)
  1. FOLIC ACID. [Concomitant]
     Active Substance: FOLIC ACID
     Dosage: 5 MG, 1X/DAY
     Route: 048
  2. PARACETAMOL [Concomitant]
     Active Substance: ACETAMINOPHEN
     Dosage: 1 G, UNK
     Route: 048
  3. RAMIPRIL. [Concomitant]
     Active Substance: RAMIPRIL
     Dosage: 10 MG, 1X/DAY
     Route: 048
  4. HYDROXOCOBALAMIN [Concomitant]
     Active Substance: HYDROXOCOBALAMIN
     Dosage: 3 DF, WEEKLY
     Route: 030
  5. ALFACALCIDOL [Concomitant]
     Active Substance: ALFACALCIDOL
     Dosage: 250 NG, 1X/DAY
     Route: 048
  6. FUROSEMIDE. [Concomitant]
     Active Substance: FUROSEMIDE
     Dosage: 40 MG, 1X/DAY (IN THE MORNING)
     Route: 048
  7. CARBOCISTEINE [Concomitant]
     Active Substance: CARBOCYSTEINE
     Dosage: 1125 MG, 1X/DAY
     Route: 048
  8. FERROGRAD C [Concomitant]
     Active Substance: ASCORBIC ACID\FERROUS SULFATE
     Dosage: 325 MG, 1X/DAY
     Route: 048
  9. METHOTREXATE SODIUM. [Suspect]
     Active Substance: METHOTREXATE SODIUM
     Dosage: 5 MG, WEEKLY
     Route: 048

REACTIONS (2)
  - Pulmonary fibrosis [Recovering/Resolving]
  - Dyspnoea [Unknown]
